FAERS Safety Report 4373886-7 (Version None)
Quarter: 2004Q1

REPORT INFORMATION
  Report Type: 
  Country: None (occurrence: None)
  Receive Date: 20040305
  Receipt Date: 20040119
  Transmission Date: 20041129
  Serious: Yes (Other)
  Sender: FDA-Public Use
  Company Number: 2004UW00941

PATIENT
  Age: 47 Year
  Sex: Male
  Weight: 86.1834 kg

DRUGS (3)
  1. CRESTOR [Suspect]
     Indication: BLOOD CHOLESTEROL INCREASED
  2. EFFEXOR [Concomitant]
  3. CLONOPIN [Concomitant]

REACTIONS (4)
  - FATIGUE [None]
  - INSOMNIA [None]
  - NERVOUSNESS [None]
  - WEIGHT INCREASED [None]
